FAERS Safety Report 12493357 (Version 1)
Quarter: 2016Q2

REPORT INFORMATION
  Report Type: Spontaneous
  Country: US (occurrence: US)
  Receive Date: 20160623
  Receipt Date: 20160623
  Transmission Date: 20160815
  Serious: Yes (Death, Hospitalization)
  Sender: FDA-Public Use
  Company Number: US-TEVA-669032USA

PATIENT
  Sex: Male

DRUGS (1)
  1. NUVIGIL [Suspect]
     Active Substance: ARMODAFINIL
     Indication: SLEEP APNOEA SYNDROME
     Route: 065

REACTIONS (5)
  - Death [Fatal]
  - Weight decreased [Unknown]
  - Dysphagia [Unknown]
  - General physical health deterioration [Recovered/Resolved]
  - Product use issue [Unknown]
